FAERS Safety Report 8773730 (Version 1)
Quarter: 2012Q4

REPORT INFORMATION
  Report Type: 
  Country: US (occurrence: US)
  Receive Date: 20120907
  Receipt Date: 20120907
  Transmission Date: 20130627
  Serious: Yes (Other)
  Sender: FDA-Public Use
  Company Number: US-COVIDIEN/TYCO HEALTHCARE/MALLINCKRODT-T201203322

PATIENT
  Age: 17 Year
  Sex: Male

DRUGS (1)
  1. SODIUM IODIDE (I 131) [Suspect]
     Indication: RADIOACTIVE IODINE THERAPY
     Dosage: total dose 263 mCi (given in 2 doses a year apart)

REACTIONS (3)
  - Hyperparathyroidism [Unknown]
  - Parathyroid tumour benign [Recovered/Resolved]
  - Transverse sinus thrombosis [Not Recovered/Not Resolved]
